FAERS Safety Report 18605707 (Version 1)
Quarter: 2020Q4

REPORT INFORMATION
  Report Type: Spontaneous
  Country: AE (occurrence: AE)
  Receive Date: 20201211
  Receipt Date: 20201211
  Transmission Date: 20210114
  Serious: Yes (Hospitalization)
  Sender: FDA-Public Use
  Company Number: AE-AMNEAL PHARMACEUTICALS-2020-AMRX-03857

PATIENT
  Age: 60 Year
  Sex: Male

DRUGS (1)
  1. METOCLOPRAMIDE HYDROCHLORIDE IR [Suspect]
     Active Substance: METOCLOPRAMIDE HYDROCHLORIDE
     Indication: VOMITING
     Dosage: UNK, (10 MG)
     Route: 042

REACTIONS (1)
  - Atrial fibrillation [Recovered/Resolved]
